FAERS Safety Report 8458202-3 (Version None)
Quarter: 2012Q2

REPORT INFORMATION
  Report Type: 
  Country: None (occurrence: None)
  Receive Date: 20120622
  Receipt Date: 20120614
  Transmission Date: 20120825
  Serious: Yes (Other)
  Sender: FDA-Public Use
  Company Number: US-JNJFOC-20120519015

PATIENT
  Sex: Female
  Weight: 86.18 kg

DRUGS (8)
  1. CYMBALTA [Concomitant]
     Indication: DEPRESSION
     Route: 048
  2. MULTI-VITAMINS [Concomitant]
     Route: 065
  3. TRAMADOL HCL [Concomitant]
     Indication: PAIN
     Dosage: FOR 1 MONTH
     Route: 065
     Dates: start: 20120101, end: 20120101
  4. ANTITHYROID DRUG, UNSPECIFIED [Concomitant]
     Indication: THYROID DISORDER
     Route: 048
  5. ADDERALL XR 10 [Concomitant]
     Route: 048
  6. REMERON [Concomitant]
     Indication: DEPRESSION
     Route: 065
  7. ORTHO EVRA [Suspect]
     Indication: CONTRACEPTION
     Route: 062
     Dates: start: 20110601, end: 20120501
  8. PAXIL [Concomitant]
     Indication: DEPRESSION
     Dosage: FALL OF 2003 TO WINTER OF 2012
     Route: 065
     Dates: start: 20030101, end: 20120101

REACTIONS (7)
  - PRODUCT QUALITY ISSUE [None]
  - PRODUCT ADHESION ISSUE [None]
  - APPLICATION SITE PRURITUS [None]
  - SKIN IRRITATION [None]
  - WRONG TECHNIQUE IN DRUG USAGE PROCESS [None]
  - UPPER LIMB FRACTURE [None]
  - CONVULSION [None]
